FAERS Safety Report 9701405 (Version 2)
Quarter: 2013Q4

REPORT INFORMATION
  Report Type: Spontaneous
  Country: US (occurrence: US)
  Receive Date: 20131121
  Receipt Date: 20131121
  Transmission Date: 20140711
  Serious: No
  Sender: FDA-Public Use
  Company Number: US-GILEAD-2008-0016576

PATIENT
  Age: 75 Year
  Sex: Female
  Weight: 60.78 kg

DRUGS (21)
  1. LETAIRIS [Suspect]
     Indication: PULMONARY ARTERIAL HYPERTENSION
     Route: 048
     Dates: start: 20080409, end: 20080523
  2. FOSAMAX [Concomitant]
     Route: 048
  3. XALATAN [Concomitant]
     Route: 046
  4. ALPHAGAN [Concomitant]
     Route: 047
  5. AMBIEN [Concomitant]
     Route: 048
  6. CREON [Concomitant]
     Route: 048
  7. LASIX [Concomitant]
     Route: 048
  8. PREDNISONE [Concomitant]
     Route: 048
  9. COUMADIN [Concomitant]
     Route: 048
  10. REVATIO [Concomitant]
     Route: 048
  11. FORADIL [Concomitant]
     Route: 055
  12. DIGOXIN [Concomitant]
     Route: 048
  13. FOLIC ACID [Concomitant]
     Route: 048
  14. SPIRONOLACTONE [Concomitant]
     Route: 048
  15. SPIRIVA [Concomitant]
     Route: 055
  16. IRON [Concomitant]
     Route: 048
  17. VYTORIN [Concomitant]
     Route: 048
     Dates: start: 2007
  18. MULTIVITAMINS [Concomitant]
     Route: 048
  19. POTASSIUM CHLORIDE [Concomitant]
     Route: 048
  20. ZEGERID [Concomitant]
     Route: 048
  21. VITAMIN C [Concomitant]
     Route: 048

REACTIONS (1)
  - Liver function test abnormal [Unknown]
